FAERS Safety Report 8301423-0 (Version None)
Quarter: 2012Q2

REPORT INFORMATION
  Report Type: 
  Country: None (occurrence: None)
  Receive Date: 20120418
  Receipt Date: 20120418
  Transmission Date: 20120825
  Serious: Yes (Hospitalization)
  Sender: FDA-Public Use
  Company Number: None

PATIENT
  Sex: Male
  Weight: 79.9 kg

DRUGS (9)
  1. MS CONTIN [Concomitant]
  2. IMEXON  / AMPLIMED [Suspect]
     Indication: DIFFUSE LARGE B-CELL LYMPHOMA
     Dosage: 1,950 MG DAYS 1-5 IV
     Route: 042
     Dates: start: 20120402, end: 20120405
  3. PRILOSEC [Concomitant]
  4. CELEXA [Concomitant]
  5. MULTI-VITAMIN [Concomitant]
  6. FRAGMIN [Concomitant]
  7. COMPAZINE [Concomitant]
  8. ZOFRAN [Concomitant]
  9. ATIVAN [Concomitant]

REACTIONS (3)
  - SMALL INTESTINAL OBSTRUCTION [None]
  - DRUG INEFFECTIVE [None]
  - VOMITING [None]
